FAERS Safety Report 25146250 (Version 1)
Quarter: 2025Q2

REPORT INFORMATION
  Report Type: Spontaneous
  Country: DE (occurrence: DE)
  Receive Date: 20250401
  Receipt Date: 20250401
  Transmission Date: 20250716
  Serious: Yes (Hospitalization, Other)
  Sender: MYLAN
  Company Number: DE-BAYER-2025A030490

PATIENT
  Sex: Female

DRUGS (16)
  1. AMBRISENTAN [Suspect]
     Active Substance: AMBRISENTAN
     Indication: Product used for unknown indication
  2. AMBRISENTAN [Suspect]
     Active Substance: AMBRISENTAN
     Route: 065
  3. AMBRISENTAN [Suspect]
     Active Substance: AMBRISENTAN
     Route: 065
  4. AMBRISENTAN [Suspect]
     Active Substance: AMBRISENTAN
  5. ADEMPAS [Suspect]
     Active Substance: RIOCIGUAT
     Indication: Pulmonary arterial hypertension
  6. ADEMPAS [Suspect]
     Active Substance: RIOCIGUAT
     Route: 065
  7. ADEMPAS [Suspect]
     Active Substance: RIOCIGUAT
     Route: 065
  8. ADEMPAS [Suspect]
     Active Substance: RIOCIGUAT
  9. REMODULIN [Suspect]
     Active Substance: TREPROSTINIL
     Indication: Product used for unknown indication
  10. REMODULIN [Suspect]
     Active Substance: TREPROSTINIL
     Route: 042
  11. REMODULIN [Suspect]
     Active Substance: TREPROSTINIL
     Route: 042
  12. REMODULIN [Suspect]
     Active Substance: TREPROSTINIL
  13. SOTATERCEPT [Concomitant]
     Active Substance: SOTATERCEPT
  14. SOTATERCEPT [Concomitant]
     Active Substance: SOTATERCEPT
     Route: 065
  15. SOTATERCEPT [Concomitant]
     Active Substance: SOTATERCEPT
     Route: 065
  16. SOTATERCEPT [Concomitant]
     Active Substance: SOTATERCEPT

REACTIONS (3)
  - Pulmonary hypertension [Unknown]
  - Peripheral vascular disorder [Unknown]
  - Fluid retention [Unknown]
